FAERS Safety Report 9516277 (Version 2)
Quarter: 2013Q3

REPORT INFORMATION
  Report Type: Report from Study
  Country: US (occurrence: US)
  Receive Date: 20130911
  Receipt Date: 20130911
  Transmission Date: 20140515
  Serious: Yes (Hospitalization)
  Sender: FDA-Public Use
  Company Number: US-ASTRAZENECA-2013SE47831

PATIENT
  Age: 62 Year
  Sex: Female
  Weight: 63.5 kg

DRUGS (3)
  1. CRESTOR [Suspect]
     Indication: BLOOD CHOLESTEROL ABNORMAL
     Route: 048
     Dates: start: 2007
  2. CRESTOR [Interacting]
     Indication: HYPERLIPIDAEMIA
     Route: 048
     Dates: start: 2007
  3. ATENOLOL [Interacting]
     Route: 065

REACTIONS (4)
  - Drug interaction [Unknown]
  - Syncope [Recovering/Resolving]
  - Bradycardia [Unknown]
  - Off label use [Unknown]
